FAERS Safety Report 15571286 (Version 2)
Quarter: 2018Q4

REPORT INFORMATION
  Report Type: Spontaneous
  Country: DE (occurrence: DE)
  Receive Date: 20181031
  Receipt Date: 20181112
  Transmission Date: 20190205
  Serious: Yes (Other)
  Sender: FDA-Public Use
  Company Number: DE-B.I. PHARMACEUTICALS,INC./RIDGEFIELD-2018-BI-052791

PATIENT
  Sex: Male

DRUGS (2)
  1. SIFROL [Suspect]
     Active Substance: PRAMIPEXOLE
     Indication: PARKINSON^S DISEASE
     Dosage: START DATE: --2007/2008
     Route: 065
  2. SIFROL [Suspect]
     Active Substance: PRAMIPEXOLE
     Route: 065
     Dates: start: 2015

REACTIONS (9)
  - Psychotic symptom [Unknown]
  - Hypersexuality [Unknown]
  - Gambling disorder [Unknown]
  - Drug dependence [Unknown]
  - Hallucination [Unknown]
  - Suicidal ideation [Not Recovered/Not Resolved]
  - Personality change [Unknown]
  - Obsessive-compulsive disorder [Unknown]
  - Obsessive thoughts [Unknown]

NARRATIVE: CASE EVENT DATE: 2010
